FAERS Safety Report 15785935 (Version 1)
Quarter: 2019Q1

REPORT INFORMATION
  Report Type: Spontaneous
  Country: ES (occurrence: ES)
  Receive Date: 20190103
  Receipt Date: 20190103
  Transmission Date: 20190417
  Serious: Yes (Death, Other)
  Sender: FDA-Public Use
  Company Number: ES-BAYER-2019-000917

PATIENT
  Age: 65 Year
  Sex: Male

DRUGS (2)
  1. STIVARGA [Suspect]
     Active Substance: REGORAFENIB
     Indication: COLORECTAL CANCER METASTATIC
     Dosage: 160 MG DAILY, FOR 21 DAYS, FOLLOWED BY 1 WEEK WITHOUT DOSES
  2. STIVARGA [Suspect]
     Active Substance: REGORAFENIB
     Indication: COLORECTAL CANCER METASTATIC
     Dosage: 120 MG, DAILY

REACTIONS (10)
  - Diarrhoea [None]
  - Metastases to lung [None]
  - Metastases to liver [None]
  - Depressed level of consciousness [None]
  - Vomiting [None]
  - Headache [None]
  - Asthenia [None]
  - Oedema [None]
  - Ataxia [None]
  - Drug ineffective [None]
